FAERS Safety Report 6728631-4 (Version None)
Quarter: 2010Q2

REPORT INFORMATION
  Report Type: 
  Country: None (occurrence: None)
  Receive Date: 20100517
  Receipt Date: 20100504
  Transmission Date: 20101027
  Serious: Yes (Hospitalization, Other)
  Sender: FDA-Public Use
  Company Number: US-ELI_LILLY_AND_COMPANY-US201005002390

PATIENT
  Age: 50 Year
  Sex: Female

DRUGS (1)
  1. SYMBYAX [Suspect]
     Dosage: 1 D/F, UNK
     Dates: start: 20100316

REACTIONS (1)
  - TRANSIENT ISCHAEMIC ATTACK [None]
